FAERS Safety Report 9712114 (Version 1)
Quarter: 2013Q4

REPORT INFORMATION
  Report Type: Spontaneous
  Country: US (occurrence: US)
  Receive Date: 20131126
  Receipt Date: 20131126
  Transmission Date: 20140711
  Serious: No
  Sender: FDA-Public Use
  Company Number: US-BRISTOL-MYERS SQUIBB COMPANY-18849653

PATIENT
  Age: 57 Year
  Sex: Female
  Weight: 99.77 kg

DRUGS (2)
  1. BYDUREON [Suspect]
     Indication: TYPE 2 DIABETES MELLITUS
     Route: 058
     Dates: start: 20130406
  2. METFORMIN HCL [Suspect]
     Indication: DIABETES MELLITUS
     Route: 048

REACTIONS (4)
  - Ear infection [Unknown]
  - Blood glucose increased [Unknown]
  - Product quality issue [Unknown]
  - Drug dose omission [Unknown]
